FAERS Safety Report 11821689 (Version 2)
Quarter: 2017Q1

REPORT INFORMATION
  Report Type: Spontaneous
  Country: US (occurrence: US)
  Receive Date: 20151210
  Receipt Date: 20170314
  Transmission Date: 20170428
  Serious: No
  Sender: FDA-Public Use
  Company Number: US-JNJFOC-20150211280

PATIENT
  Age: 66 Year
  Sex: Female

DRUGS (7)
  1. DAPSONE. [Concomitant]
     Active Substance: DAPSONE
     Indication: ERYTHEMA NODOSUM
     Route: 048
  2. POTASSIUM IODIDE. [Suspect]
     Active Substance: POTASSIUM IODIDE
     Indication: ERYTHEMA NODOSUM
  3. PRAVASTATIN. [Concomitant]
     Active Substance: PRAVASTATIN
     Indication: CARDIAC DISORDER
     Route: 048
  4. LISINOPRIL. [Concomitant]
     Active Substance: LISINOPRIL
     Route: 048
  5. GABAPENTIN. [Concomitant]
     Active Substance: GABAPENTIN
     Route: 048
  6. IMBRUVICA [Suspect]
     Active Substance: IBRUTINIB
     Indication: CHRONIC LYMPHOCYTIC LEUKAEMIA
     Route: 048
     Dates: start: 20140715
  7. PREDNISONE. [Concomitant]
     Active Substance: PREDNISONE
     Indication: ERYTHEMA NODOSUM
     Route: 048

REACTIONS (5)
  - Thyroid function test abnormal [Unknown]
  - Dyspepsia [Not Recovered/Not Resolved]
  - Tenderness [Not Recovered/Not Resolved]
  - Palpitations [Unknown]
  - Sinusitis [Recovering/Resolving]

NARRATIVE: CASE EVENT DATE: 201412
